FAERS Safety Report 9529206 (Version 1)
Quarter: 2013Q1

REPORT INFORMATION
  Report Type: Spontaneous
  Country: US (occurrence: None)
  Receive Date: 20130320
  Receipt Date: 20130320
  Transmission Date: 20140127
  Serious: Yes (Death, Other)
  Sender: FDA-Public Use
  Company Number: 075149

PATIENT
  Age: 23 Year
  Sex: Male

DRUGS (3)
  1. ALPRAZOLAM [Suspect]
     Route: 055
  2. OPIODS [Suspect]
     Route: 055
  3. COCAINE [Suspect]
     Route: 055

REACTIONS (3)
  - Cardio-respiratory arrest [None]
  - Drug abuse [None]
  - Incorrect route of drug administration [None]
